FAERS Safety Report 21051778 (Version 1)
Quarter: 2022Q3

REPORT INFORMATION
  Report Type: Spontaneous
  Country: US (occurrence: None)
  Receive Date: 20220706
  Receipt Date: 20220706
  Transmission Date: 20221027
  Serious: No
  Sender: FDA-Public Use
  Company Number: None

PATIENT
  Sex: Female

DRUGS (1)
  1. IBRANCE [Suspect]
     Active Substance: PALBOCICLIB
     Indication: Brain neoplasm
     Dosage: 125MG   125MG X 21 DAYS ORAL?
     Route: 048
     Dates: start: 20210930

REACTIONS (1)
  - Seizure [None]
